FAERS Safety Report 7066431-9 (Version None)
Quarter: 2010Q4

REPORT INFORMATION
  Report Type: 
  Country: None (occurrence: None)
  Receive Date: 20101027
  Receipt Date: 20091202
  Transmission Date: 20110411
  Serious: No
  Sender: FDA-Public Use
  Company Number: US-WYE-H12500309

PATIENT
  Age: 68 Year
  Sex: Female

DRUGS (8)
  1. PREMPRO [Suspect]
     Dosage: 0.625/2.5MG DAILY
     Route: 048
     Dates: start: 19890101, end: 20091101
  2. FELODIPINE [Concomitant]
  3. LISINOPRIL [Concomitant]
  4. OMEPRAZOLE [Concomitant]
  5. HYDROCHLOROTHIAZIDE [Concomitant]
  6. PRAVASTATIN [Concomitant]
  7. FLECAINIDE ACETATE [Concomitant]
  8. SERTRALINE HYDROCHLORIDE [Concomitant]

REACTIONS (3)
  - ARTHRALGIA [None]
  - PAIN IN EXTREMITY [None]
  - WITHDRAWAL SYNDROME [None]
